FAERS Safety Report 6780997-5 (Version None)
Quarter: 2010Q2

REPORT INFORMATION
  Report Type: 
  Country: None (occurrence: None)
  Receive Date: 20100617
  Receipt Date: 20100617
  Transmission Date: 20101027
  Serious: Yes (Other)
  Sender: FDA-Public Use
  Company Number: None

PATIENT
  Sex: Male
  Weight: 20.6 kg

DRUGS (4)
  1. PEG ASPARGASE 750 U/ML ENZON [Suspect]
     Indication: ACUTE LYMPHOCYTIC LEUKAEMIA
     Dosage: 2075 MG ONCE IM
     Route: 030
     Dates: start: 20100329, end: 20100503
  2. BACTRIM [Concomitant]
  3. LANSOPRAZOLE [Concomitant]
  4. FLUCONAZOLE [Concomitant]

REACTIONS (4)
  - DRUG HYPERSENSITIVITY [None]
  - OEDEMA PERIPHERAL [None]
  - RASH [None]
  - URTICARIA [None]
